FAERS Safety Report 13803043 (Version 1)
Quarter: 2017Q3

REPORT INFORMATION
  Report Type: Spontaneous
  Country: TR (occurrence: TR)
  Receive Date: 20170728
  Receipt Date: 20170728
  Transmission Date: 20171127
  Serious: Yes (Other)
  Sender: FDA-Public Use
  Company Number: TR-RANBAXY-2015R1-92767

PATIENT
  Age: 69 Year
  Sex: Female

DRUGS (4)
  1. FERRIC HYDROXIDE POLYMALTOSE [Suspect]
     Active Substance: IRON POLYMALTOSE
     Indication: HYPOSIDERAEMIA
  2. FERROUS SULFATE. [Suspect]
     Active Substance: FERROUS SULFATE
     Indication: IRON DEFICIENCY ANAEMIA
  3. FERROUS SULFATE. [Suspect]
     Active Substance: FERROUS SULFATE
     Indication: HYPOSIDERAEMIA
     Dosage: UNK
     Route: 048
  4. FERRIC HYDROXIDE POLYMALTOSE [Suspect]
     Active Substance: IRON POLYMALTOSE
     Indication: IRON DEFICIENCY ANAEMIA
     Dosage: UNK
     Route: 048

REACTIONS (1)
  - Angioedema [Recovered/Resolved]
